FAERS Safety Report 9511314 (Version 2)
Quarter: 2013Q3

REPORT INFORMATION
  Report Type: Spontaneous
  Country: FR (occurrence: FR)
  Receive Date: 20130910
  Receipt Date: 20130923
  Transmission Date: 20140515
  Serious: Yes (Other)
  Sender: FDA-Public Use
  Company Number: FR-JNJFOC-20130816499

PATIENT
  Age: 57 Year
  Sex: Male

DRUGS (3)
  1. DUROGESIC [Suspect]
     Indication: SCIATICA
     Dosage: STARTED 15 DAYS BEFORE
     Route: 062
  2. VOLTARENE [Suspect]
     Indication: SCIATICA
     Dosage: STARTED 15 DAYS BEFORE
     Route: 065
  3. SEGLOR [Concomitant]
     Indication: SCIATICA
     Route: 065

REACTIONS (4)
  - Dizziness [Unknown]
  - Speech disorder [Unknown]
  - Nystagmus [Unknown]
  - Tremor [Unknown]
